FAERS Safety Report 8312244-7 (Version None)
Quarter: 2012Q2

REPORT INFORMATION
  Report Type: 
  Country: None (occurrence: None)
  Receive Date: 20120425
  Receipt Date: 20120416
  Transmission Date: 20120825
  Serious: Yes (Other)
  Sender: FDA-Public Use
  Company Number: US-ABBOTT-12P-163-0888404-00

PATIENT
  Sex: Male
  Weight: 91.708 kg

DRUGS (4)
  1. HUMIRA [Suspect]
     Indication: RHEUMATOID ARTHRITIS
     Dates: end: 20110701
  2. HUMIRA [Suspect]
     Dates: start: 20110701, end: 20120201
  3. OXYCODONE HCL [Concomitant]
     Indication: PAIN
  4. METHOTREXATE [Concomitant]
     Indication: RHEUMATOID ARTHRITIS

REACTIONS (6)
  - TOOTH DISORDER [None]
  - TOOTH FRACTURE [None]
  - TOOTHACHE [None]
  - ARTHRALGIA [None]
  - DENTAL CARIES [None]
  - TOOTH EXTRACTION [None]
